FAERS Safety Report 15391089 (Version 1)
Quarter: 2018Q3

REPORT INFORMATION
  Report Type: Spontaneous
  Country: FR (occurrence: FR)
  Receive Date: 20180917
  Receipt Date: 20180917
  Transmission Date: 20181010
  Serious: Yes (Hospitalization)
  Sender: FDA-Public Use
  Company Number: FR-MYLANLABS-2018M1066545

PATIENT
  Age: 74 Year
  Sex: Male

DRUGS (1)
  1. QUININE [Suspect]
     Active Substance: QUININE
     Indication: MALARIA
     Route: 065

REACTIONS (2)
  - Normochromic normocytic anaemia [Recovered/Resolved]
  - Condition aggravated [Recovered/Resolved]
